FAERS Safety Report 20952712 (Version 6)
Quarter: 2022Q4

REPORT INFORMATION
  Report Type: Spontaneous
  Country: PL (occurrence: PL)
  Receive Date: 20220613
  Receipt Date: 20221014
  Transmission Date: 20230113
  Serious: Yes (Hospitalization, Other)
  Sender: FDA-Public Use
  Company Number: PL-PURDUE PHARMA-USA-2022-0294369

PATIENT
  Age: 74 Year
  Sex: Male

DRUGS (14)
  1. OXYCODONE HYDROCHLORIDE [Suspect]
     Active Substance: OXYCODONE HYDROCHLORIDE
     Indication: Product used for unknown indication
     Dosage: UNKNOWN
     Route: 065
  2. TRAMADOL HYDROCHLORIDE [Suspect]
     Active Substance: TRAMADOL HYDROCHLORIDE
     Indication: Product used for unknown indication
     Dosage: UNKNOWN
     Route: 065
  3. ENOXAPARIN [Suspect]
     Active Substance: ENOXAPARIN
     Indication: Product used for unknown indication
     Dosage: UNKNOWN
     Route: 065
  4. ENOXAPARIN [Suspect]
     Active Substance: ENOXAPARIN
     Dosage: UNK
  5. ENOXAPARIN [Suspect]
     Active Substance: ENOXAPARIN
     Dosage: UNKNOWN
  6. BUPIVACAINE [Suspect]
     Active Substance: BUPIVACAINE
     Indication: Product used for unknown indication
     Dosage: UNKNOWN
     Route: 065
  7. BUPIVACAINE [Suspect]
     Active Substance: BUPIVACAINE
     Dosage: UNK
  8. BUPIVACAINE [Suspect]
     Active Substance: BUPIVACAINE
     Dosage: UNKNOWN
  9. PSEUDOEPHEDRINE [Suspect]
     Active Substance: PSEUDOEPHEDRINE
     Indication: Product used for unknown indication
     Dosage: UNKNOWN
     Route: 065
  10. PSEUDOEPHEDRINE [Suspect]
     Active Substance: PSEUDOEPHEDRINE
     Dosage: UNK
  11. PSEUDOEPHEDRINE [Suspect]
     Active Substance: PSEUDOEPHEDRINE
     Dosage: UNKNOWN
  12. GENTAMICIN [Suspect]
     Active Substance: GENTAMICIN
     Indication: Product used for unknown indication
     Dosage: UNKNOWN
     Route: 065
  13. GENTAMICIN [Suspect]
     Active Substance: GENTAMICIN
     Dosage: UNK
  14. GENTAMICIN [Suspect]
     Active Substance: GENTAMICIN
     Dosage: UNKNOWN

REACTIONS (1)
  - Symmetrical drug-related intertriginous and flexural exanthema [Recovered/Resolved]
